FAERS Safety Report 9157344 (Version 5)
Quarter: 2014Q1

REPORT INFORMATION
  Report Type: Spontaneous
  Country: US (occurrence: US)
  Receive Date: 20130312
  Receipt Date: 20140110
  Transmission Date: 20141002
  Serious: No
  Sender: FDA-Public Use
  Company Number: US-PFIZER INC-2013081033

PATIENT
  Age: 58 Year
  Sex: Female
  Weight: 67.1 kg

DRUGS (5)
  1. SERTRALINE HCL [Suspect]
     Indication: PANIC DISORDER
     Dosage: 25 MG (HALF A TABLET OF 50MG), 1X/DAY
     Route: 048
  2. SERTRALINE HCL [Suspect]
     Dosage: UNK
     Route: 048
  3. XANAX [Concomitant]
     Dosage: UNK, AS NEEDED
  4. ZANTAC [Concomitant]
     Indication: ABDOMINAL DISCOMFORT
     Dosage: UNK
  5. PROVENTIL [Concomitant]
     Indication: ASTHMA
     Dosage: UNK

REACTIONS (4)
  - Product taste abnormal [Unknown]
  - Product odour abnormal [Unknown]
  - Glossodynia [Unknown]
  - Hypoaesthesia oral [Unknown]
